FAERS Safety Report 23109929 (Version 1)
Quarter: 2023Q4

REPORT INFORMATION
  Report Type: Spontaneous
  Country: US (occurrence: US)
  Receive Date: 20231026
  Receipt Date: 20231026
  Transmission Date: 20240109
  Serious: No
  Sender: FDA-Public Use
  Company Number: US-MYLANLABS-2023M1111326

PATIENT
  Age: 51 Year
  Sex: Female
  Weight: 99.33 kg

DRUGS (1)
  1. WIXELA INHUB [Suspect]
     Active Substance: FLUTICASONE PROPIONATE\SALMETEROL XINAFOATE
     Indication: Dyspnoea
     Dosage: 250/50 MICROGRAM, BID (MORNING AND EVENING, DAILY)
     Route: 055
     Dates: start: 20231002, end: 20231016

REACTIONS (2)
  - Device malfunction [Unknown]
  - Product dose omission issue [Unknown]

NARRATIVE: CASE EVENT DATE: 20231016
